FAERS Safety Report 9791800 (Version 1)
Quarter: 2014Q1

REPORT INFORMATION
  Report Type: Spontaneous
  Country: GB (occurrence: GB)
  Receive Date: 20140102
  Receipt Date: 20140102
  Transmission Date: 20141002
  Serious: Yes (Life-Threatening)
  Sender: FDA-Public Use
  Company Number: GB-JNJFOC-20131217474

PATIENT
  Age: 56 Year
  Sex: Female

DRUGS (5)
  1. XARELTO [Suspect]
     Indication: THROMBOSIS PROPHYLAXIS
     Route: 048
     Dates: start: 20130214, end: 20130228
  2. NAPROXEN [Concomitant]
     Route: 065
  3. CLONIDINE [Concomitant]
     Route: 065
  4. CODEINE [Concomitant]
     Route: 065
  5. PARACETAMOL [Concomitant]
     Route: 065

REACTIONS (2)
  - Subarachnoid haemorrhage [Unknown]
  - International normalised ratio decreased [Unknown]
